FAERS Safety Report 8618563-9 (Version None)
Quarter: 2012Q3

REPORT INFORMATION
  Report Type: 
  Country: None (occurrence: None)
  Receive Date: 20120824
  Receipt Date: 20120822
  Transmission Date: 20120928
  Serious: No
  Sender: FDA-Public Use
  Company Number: US-PFIZER INC-2012206517

PATIENT
  Sex: Female

DRUGS (2)
  1. PRISTIQ [Suspect]
     Dosage: 50 MG SPLIT IN HALF, UNK
  2. PRISTIQ [Suspect]
     Indication: ANXIETY
     Dosage: 50 MG, UNK

REACTIONS (2)
  - OFF LABEL USE [None]
  - DRUG INTOLERANCE [None]
